FAERS Safety Report 6419861-X (Version None)
Quarter: 2009Q4

REPORT INFORMATION
  Report Type: 
  Country: None (occurrence: None)
  Receive Date: 20091029
  Receipt Date: 20091021
  Transmission Date: 20100525
  Serious: Yes (Death)
  Sender: FDA-Public Use
  Company Number: JP-BAYER-200913572BYL

PATIENT
  Age: 76 Year
  Sex: Male
  Weight: 55 kg

DRUGS (9)
  1. NEXAVAR [Suspect]
     Indication: HEPATIC NEOPLASM MALIGNANT
     Dosage: UNIT DOSE: 200 MG
     Route: 048
     Dates: start: 20090729, end: 20090827
  2. LASIX [Concomitant]
     Dosage: SINCE BEFORE ADMINISTRATION
     Route: 048
  3. ALDACTONE [Concomitant]
     Dosage: SINCE BEFORE ADMINISTRATION
     Route: 048
  4. LANSOPRAZOLE [Concomitant]
     Dosage: SINCE BEFORE ADMINISTRATION
     Route: 048
  5. RINDERON [Concomitant]
     Dosage: SINCE BEFORE ADMINISTRATION
     Route: 048
  6. SHAKUYAKU-KANZO-TO [Concomitant]
     Dosage: SINCE BEFORE ADMINISTRATION
     Route: 048
  7. AMINOLEBAN EN [Concomitant]
     Dosage: SINCE BEFORE ADMINISTRATION
     Route: 048
  8. DOGMATYL [Concomitant]
     Dosage: SINCE BEFORE ADMINISTRATION
     Route: 048
  9. MYSLEE [Concomitant]
     Route: 048
     Dates: start: 20090812

REACTIONS (6)
  - DIARRHOEA [None]
  - DRUG EFFECT DECREASED [None]
  - HEPATIC FUNCTION ABNORMAL [None]
  - HEPATIC NEOPLASM MALIGNANT [None]
  - MALIGNANT NEOPLASM PROGRESSION [None]
  - RASH [None]
